FAERS Safety Report 5720763-2 (Version None)
Quarter: 2008Q2

REPORT INFORMATION
  Report Type: 
  Country: None (occurrence: None)
  Receive Date: 20080429
  Receipt Date: 20080428
  Transmission Date: 20081010
  Serious: Yes (Disabling)
  Sender: FDA-Public Use
  Company Number: JP-BRISTOL-MYERS SQUIBB COMPANY-14088041

PATIENT
  Age: 70 Year
  Sex: Male

DRUGS (2)
  1. TAXOL [Suspect]
     Indication: GASTRIC CANCER
     Route: 041
     Dates: start: 20071204, end: 20071204
  2. TS-1 [Concomitant]
     Route: 048
     Dates: start: 20071204

REACTIONS (1)
  - CEREBRAL INFARCTION [None]
